FAERS Safety Report 7444277-7 (Version None)
Quarter: 2011Q2

REPORT INFORMATION
  Report Type: 
  Country: None (occurrence: None)
  Receive Date: 20110429
  Receipt Date: 20110415
  Transmission Date: 20111010
  Serious: No
  Sender: FDA-Public Use
  Company Number: US-JNJFOC-20110407638

PATIENT
  Sex: Female
  Weight: 58.51 kg

DRUGS (5)
  1. LISINOPRIL [Concomitant]
     Indication: BLOOD PRESSURE
     Route: 048
  2. PANCREASE [Concomitant]
     Route: 048
  3. DURAGESIC [Suspect]
     Indication: ILL-DEFINED DISORDER
     Route: 062
  4. FENTANYL CITRATE [Suspect]
     Indication: PRODUCT USED FOR UNKNOWN INDICATION
     Dosage: 75MCG+75MCG 2 PATCHES EVERY 2 DAYS
     Route: 062
  5. FENTANYL-100 [Suspect]
     Indication: ILL-DEFINED DISORDER
     Route: 062

REACTIONS (10)
  - PAIN [None]
  - WITHDRAWAL SYNDROME [None]
  - THERAPEUTIC RESPONSE UNEXPECTED WITH DRUG SUBSTITUTION [None]
  - GAIT DISTURBANCE [None]
  - BALANCE DISORDER [None]
  - DRUG DOSE OMISSION [None]
  - DRUG INEFFECTIVE [None]
  - HYPERSOMNIA [None]
  - FATIGUE [None]
  - MALAISE [None]
